FAERS Safety Report 13340548 (Version 1)
Quarter: 2017Q1

REPORT INFORMATION
  Report Type: Spontaneous
  Country: GB (occurrence: GB)
  Receive Date: 20170316
  Receipt Date: 20170316
  Transmission Date: 20170428
  Serious: Yes (Other)
  Sender: FDA-Public Use
  Company Number: GB-DRREDDYS-GER/UKI/17/0087742

PATIENT
  Age: 68 Year
  Sex: Female
  Weight: 78 kg

DRUGS (3)
  1. TIZANIDINE. [Suspect]
     Active Substance: TIZANIDINE
     Indication: HEADACHE
     Route: 048
     Dates: start: 20170201, end: 20170203
  2. PERINDOPRIL [Concomitant]
     Active Substance: PERINDOPRIL
     Indication: PRODUCT USED FOR UNKNOWN INDICATION
  3. AMLODIPINE [Concomitant]
     Active Substance: AMLODIPINE BESYLATE
     Indication: PRODUCT USED FOR UNKNOWN INDICATION

REACTIONS (4)
  - Vision blurred [Recovered/Resolved]
  - Dizziness [Recovered/Resolved]
  - Deafness [Recovered/Resolved]
  - Hypotension [Recovered/Resolved]

NARRATIVE: CASE EVENT DATE: 20170203
